FAERS Safety Report 25928978 (Version 1)
Quarter: 2025Q4

REPORT INFORMATION
  Report Type: Spontaneous
  Country: EU (occurrence: EU)
  Receive Date: 20251016
  Receipt Date: 20251016
  Transmission Date: 20260118
  Serious: Yes (Hospitalization)
  Sender: RANBAXY
  Company Number: EU-AFSSAPS-NC2025001002

PATIENT
  Age: 85 Year
  Sex: Female
  Weight: 71.3 kg

DRUGS (2)
  1. SERTRALINE [Suspect]
     Active Substance: SERTRALINE HYDROCHLORIDE
     Indication: Depression
     Dosage: 50 MILLIGRAM, DAILY
     Route: 048
  2. ELIQUIS [Suspect]
     Active Substance: APIXABAN
     Indication: Thrombosis prophylaxis
     Dosage: 5 MILLIGRAM, DAILY, 2.5 MG 2 TIMES A DAY
     Route: 048
     Dates: end: 20250610

REACTIONS (1)
  - Subarachnoid haemorrhage [Recovering/Resolving]

NARRATIVE: CASE EVENT DATE: 20250607
